FAERS Safety Report 16269315 (Version 3)
Quarter: 2019Q3

REPORT INFORMATION
  Report Type: Report from Study
  Country: CO (occurrence: CO)
  Receive Date: 20190503
  Receipt Date: 20190719
  Transmission Date: 20191004
  Serious: Yes (Death, Hospitalization, Other)
  Sender: FDA-Public Use
  Company Number: CO-ACTELION-A-CH2019-190007

PATIENT
  Age: 89 Year
  Sex: Female
  Weight: 39 kg

DRUGS (3)
  1. SPIOLTO RESPIMAT [Concomitant]
     Active Substance: OLODATEROL HYDROCHLORIDE\TIOTROPIUM BROMIDE MONOHYDRATE
  2. BERODUAL [Concomitant]
     Active Substance: FENOTEROL HYDROBROMIDE\IPRATROPIUM BROMIDE
  3. OPSUMIT [Suspect]
     Active Substance: MACITENTAN
     Indication: PULMONARY ARTERIAL HYPERTENSION
     Dosage: 10 MG, QD
     Route: 048
     Dates: start: 20190129, end: 201904

REACTIONS (13)
  - Abdominal pain [Fatal]
  - Vomiting [Fatal]
  - Choking [Not Recovered/Not Resolved]
  - Syncope [Fatal]
  - Chest pain [Fatal]
  - Back pain [Fatal]
  - Asthenia [Fatal]
  - Weight decreased [Not Recovered/Not Resolved]
  - Underweight [Unknown]
  - Cholelithiasis [Fatal]
  - Musculoskeletal pain [Fatal]
  - Decreased appetite [Fatal]
  - Apathy [Recovering/Resolving]

NARRATIVE: CASE EVENT DATE: 201904
